FAERS Safety Report 9247455 (Version 1)
Quarter: 2013Q2

REPORT INFORMATION
  Report Type: Spontaneous
  Country: BR (occurrence: BR)
  Receive Date: 20130423
  Receipt Date: 20130423
  Transmission Date: 20140414
  Serious: Yes (Other)
  Sender: FDA-Public Use
  Company Number: BR-SANOFI-AVENTIS-2012SA071689

PATIENT
  Age: 40 Year
  Sex: Female
  Weight: 57 kg

DRUGS (5)
  1. CLEXANE [Suspect]
     Indication: PRODUCT USED FOR UNKNOWN INDICATION
     Dosage: STRENGTH- 40 MG
     Route: 065
  2. CLEXANE [Suspect]
     Indication: PRODUCT USED FOR UNKNOWN INDICATION
     Dosage: STRENGTH- 40 MG
     Route: 065
     Dates: end: 201303
  3. FRAGMIN [Concomitant]
  4. VITAMINS [Concomitant]
  5. ENOXAPARIN [Concomitant]

REACTIONS (3)
  - Cervix dystocia [Not Recovered/Not Resolved]
  - Uterine hypotonus [Not Recovered/Not Resolved]
  - Exposure during pregnancy [Unknown]
